FAERS Safety Report 8458485-X (Version None)
Quarter: 2012Q2

REPORT INFORMATION
  Report Type: 
  Country: None (occurrence: None)
  Receive Date: 20120622
  Receipt Date: 20120615
  Transmission Date: 20120825
  Serious: Yes (Hospitalization, Other)
  Sender: FDA-Public Use
  Company Number: ES-UCBSA-056618

PATIENT
  Age: 55 Year
  Sex: Female
  Weight: 54 kg

DRUGS (6)
  1. IBUPROFEN [Concomitant]
     Indication: RHEUMATOID ARTHRITIS
     Route: 048
     Dates: start: 20060101
  2. OMEPRAZOLE [Concomitant]
     Dosage: DAILY DOSE: 20 MG
     Route: 048
     Dates: start: 20060101
  3. LEFLUNOMIDE [Concomitant]
     Indication: RHEUMATOID ARTHRITIS
     Route: 048
     Dates: start: 20080202
  4. DEFLAXACORT [Concomitant]
     Indication: RHEUMATOID ARTHRITIS
     Route: 048
     Dates: start: 20110501
  5. CALCIUM/ VIT D [Concomitant]
     Indication: OSTEOPOROSIS
     Dosage: 1200 MG-880 IU/ DAILY
     Route: 048
     Dates: start: 20060101
  6. CIMZIA [Suspect]
     Indication: RHEUMATOID ARTHRITIS
     Route: 058
     Dates: start: 20120101, end: 20120101

REACTIONS (1)
  - RASH GENERALISED [None]
